FAERS Safety Report 18222671 (Version 2)
Quarter: 2020Q3

REPORT INFORMATION
  Report Type: Spontaneous
  Country: JP (occurrence: JP)
  Receive Date: 20200902
  Receipt Date: 20200921
  Transmission Date: 20201103
  Serious: Yes (Other)
  Sender: FDA-Public Use
  Company Number: JP-ROCHE-2670485

PATIENT
  Age: 80 Year
  Sex: Male

DRUGS (1)
  1. RANIBIZUMAB. [Suspect]
     Active Substance: RANIBIZUMAB
     Indication: AGE-RELATED MACULAR DEGENERATION
     Dosage: ALSO RECEIVED DOSES IN JAN/2019, FEB/2019, MAR/2019, JUL/2019, DEC/2019 AND MAY/2020
     Route: 050
     Dates: start: 201612

REACTIONS (1)
  - Subretinal fluid [Unknown]
